FAERS Safety Report 15895102 (Version 5)
Quarter: 2025Q3

REPORT INFORMATION
  Report Type: Report from Study
  Country: EU (occurrence: EU)
  Receive Date: 20190131
  Receipt Date: 20250709
  Transmission Date: 20251020
  Serious: Yes (Life-Threatening, Hospitalization, Other)
  Sender: NOVARTIS
  Company Number: PHHY2019NL019595

PATIENT
  Age: 65 Year
  Sex: Male
  Weight: 72.5 kg

DRUGS (9)
  1. SANDOSTATIN LAR DEPOT [Suspect]
     Active Substance: OCTREOTIDE ACETATE
     Indication: Neuroendocrine tumour
     Dosage: 30MG/2ML, Q4W
     Route: 030
  2. SANDOSTATIN LAR DEPOT [Suspect]
     Active Substance: OCTREOTIDE ACETATE
     Route: 030
     Dates: start: 20141126
  3. SANDOSTATIN LAR DEPOT [Suspect]
     Active Substance: OCTREOTIDE ACETATE
     Dosage: 30MG/2ML, Q4W
     Route: 030
     Dates: start: 201410
  4. MORPHINE SULFATE [Concomitant]
     Active Substance: MORPHINE SULFATE
     Indication: Product used for unknown indication
     Route: 048
  5. GLYCOPHOS [Concomitant]
     Active Substance: SODIUM GLYCEROPHOSPHATE ANHYDROUS
     Indication: Product used for unknown indication
     Dosage: FLACON 20 ML, 15 MMOL PER INFUSION,
     Route: 042
  6. Creon forte [Concomitant]
     Indication: Product used for unknown indication
     Route: 048
     Dates: start: 201902
  7. IMODIUM [Concomitant]
     Active Substance: LOPERAMIDE HYDROCHLORIDE
     Indication: Product used for unknown indication
     Route: 048
  8. METFORMIN HYDROCHLORIDE [Concomitant]
     Active Substance: METFORMIN HYDROCHLORIDE
     Indication: Product used for unknown indication
     Route: 048
  9. ONDANSETRON [Concomitant]
     Active Substance: ONDANSETRON
     Indication: Diarrhoea
     Route: 065
     Dates: start: 201902

REACTIONS (25)
  - Metastasis [Not Recovered/Not Resolved]
  - Dehydration [Recovering/Resolving]
  - Chronic kidney disease [Recovered/Resolved]
  - Serum serotonin increased [Unknown]
  - Thirst [Unknown]
  - Fatigue [Unknown]
  - Asthenia [Unknown]
  - Stoma complication [Not Recovered/Not Resolved]
  - Blood chromogranin A increased [Unknown]
  - Malnutrition [Unknown]
  - Electrolyte imbalance [Unknown]
  - Hyponatraemia [Unknown]
  - Diarrhoea [Not Recovered/Not Resolved]
  - Flushing [Unknown]
  - Hypovolaemic shock [Unknown]
  - Hypokalaemia [Unknown]
  - Hypocalcaemia [Unknown]
  - Hypomagnesaemia [Unknown]
  - Hypophosphataemia [Unknown]
  - Gastrointestinal stoma complication [Unknown]
  - Dehydration [Recovered/Resolved]
  - Gastroenteropancreatic neuroendocrine tumour disease [Unknown]
  - Malignant neoplasm progression [Unknown]
  - Type 2 diabetes mellitus [Unknown]
  - Weight increased [Unknown]

NARRATIVE: CASE EVENT DATE: 20160601
